FAERS Safety Report 4515370-3 (Version None)
Quarter: 2004Q4

REPORT INFORMATION
  Report Type: 
  Country: None (occurrence: None)
  Receive Date: 20041201
  Receipt Date: 20041112
  Transmission Date: 20050328
  Serious: Yes (Hospitalization)
  Sender: FDA-Public Use
  Company Number: US-ROCHE-386374

PATIENT
  Age: 57 Year
  Sex: Female

DRUGS (2)
  1. PEGASYS [Suspect]
     Indication: DRUG USE FOR UNKNOWN INDICATION
     Dosage: ROUTE: INJECTION
     Route: 050
     Dates: start: 20041105
  2. COPEGUS [Suspect]
     Indication: DRUG USE FOR UNKNOWN INDICATION
     Route: 048
     Dates: start: 20041105

REACTIONS (17)
  - BALANCE DISORDER [None]
  - BLISTER [None]
  - CRYING [None]
  - EPISTAXIS [None]
  - ERYTHEMA [None]
  - HEADACHE [None]
  - NASAL MUCOSAL DISORDER [None]
  - PALPITATIONS [None]
  - PYREXIA [None]
  - RASH MACULAR [None]
  - RHINITIS [None]
  - RHINORRHOEA [None]
  - SCREAMING [None]
  - SWELLING FACE [None]
  - TINNITUS [None]
  - TREMOR [None]
  - VISION BLURRED [None]
